FAERS Safety Report 25976107 (Version 3)
Quarter: 2025Q4

REPORT INFORMATION
  Report Type: Report from Study
  Country: US (occurrence: US)
  Receive Date: 20251029
  Receipt Date: 20251223
  Transmission Date: 20260118
  Serious: No
  Sender: MALLINCKRODT
  Company Number: US-MALLINCKRODT-MNK202506542

PATIENT
  Age: 58 Year
  Sex: Female

DRUGS (1)
  1. CORTICOTROPIN [Suspect]
     Active Substance: CORTICOTROPIN
     Indication: Keratitis
     Dosage: UNKNOWN
     Dates: start: 20250517

REACTIONS (5)
  - Glomerular filtration rate decreased [Unknown]
  - Blood blister [Unknown]
  - Skin discolouration [Unknown]
  - Raynaud^s phenomenon [Unknown]
  - Blood potassium decreased [Unknown]

NARRATIVE: CASE EVENT DATE: 20250101
